FAERS Safety Report 25046710 (Version 1)
Quarter: 2025Q1

REPORT INFORMATION
  Report Type: Spontaneous
  Country: TW (occurrence: TW)
  Receive Date: 20250306
  Receipt Date: 20250306
  Transmission Date: 20250409
  Serious: Yes (Other)
  Sender: AMGEN
  Company Number: TW-AMGEN-TWNSP2025034361

PATIENT

DRUGS (2)
  1. TRASTUZUMAB [Suspect]
     Active Substance: TRASTUZUMAB
     Indication: Uterine cancer
     Route: 065
  2. CARBOPLATIN\PACLITAXEL [Concomitant]
     Active Substance: CARBOPLATIN\PACLITAXEL
     Indication: Uterine cancer
     Route: 065

REACTIONS (22)
  - Intestinal obstruction [Unknown]
  - Hypertension [Unknown]
  - Acute kidney injury [Unknown]
  - Renal impairment [Unknown]
  - Hypokalaemia [Unknown]
  - Sepsis [Unknown]
  - Thrombocytopenia [Unknown]
  - Anaemia [Unknown]
  - Neutropenia [Unknown]
  - Drug effective for unapproved indication [Unknown]
  - Left ventricular dysfunction [Unknown]
  - Diarrhoea [Unknown]
  - Electrolyte imbalance [Unknown]
  - Off label use [Unknown]
  - Hyponatraemia [Unknown]
  - Gastrointestinal disorder [Unknown]
  - Peripheral sensory neuropathy [Unknown]
  - Malaise [Unknown]
  - Constipation [Unknown]
  - Nausea [Unknown]
  - Vomiting [Unknown]
  - Fatigue [Unknown]
